FAERS Safety Report 19523289 (Version 1)
Quarter: 2021Q3

REPORT INFORMATION
  Report Type: Spontaneous
  Country: JP (occurrence: JP)
  Receive Date: 20210712
  Receipt Date: 20210712
  Transmission Date: 20211014
  Serious: Yes (Other)
  Sender: FDA-Public Use
  Company Number: JP-PFIZER INC-2021805259

PATIENT
  Sex: Male

DRUGS (2)
  1. LYRICA [Suspect]
     Active Substance: PREGABALIN
     Dosage: 300 MG AT A TIME
     Route: 048
  2. LYRICA [Suspect]
     Active Substance: PREGABALIN
     Indication: PAIN
     Dosage: UNK
     Route: 048

REACTIONS (10)
  - Muscular weakness [Unknown]
  - Drug ineffective [Unknown]
  - Diabetes mellitus [Unknown]
  - Feeling hot [Unknown]
  - Gait inability [Unknown]
  - Dizziness [Unknown]
  - Neuralgia [Unknown]
  - Intentional product misuse [Unknown]
  - Somnolence [Unknown]
  - Decreased appetite [Unknown]
